FAERS Safety Report 8517006-3 (Version None)
Quarter: 2012Q3

REPORT INFORMATION
  Report Type: 
  Country: None (occurrence: None)
  Receive Date: 20120718
  Receipt Date: 20120710
  Transmission Date: 20120928
  Serious: Yes (Hospitalization, Other)
  Sender: FDA-Public Use
  Company Number: US-ASTRAZENECA-2011SE32252

PATIENT
  Age: 63 Year
  Sex: Female

DRUGS (19)
  1. NEXIUM [Suspect]
     Indication: GASTROOESOPHAGEAL REFLUX DISEASE
     Route: 048
     Dates: start: 20030101, end: 20090101
  2. LEVAQUIN [Concomitant]
     Route: 048
     Dates: start: 20050929
  3. ACIPHEX [Concomitant]
     Indication: GASTROOESOPHAGEAL REFLUX DISEASE
     Dates: start: 20070401
  4. ALEVE [Concomitant]
     Indication: PAIN
  5. FORTEO [Concomitant]
     Indication: OSTEOPOROSIS
     Route: 065
  6. DEPOESTRADOL [Concomitant]
     Dates: start: 19960101, end: 19990101
  7. DARVOCET-N 50 [Concomitant]
     Dosage: 100 TID
  8. BENZONATATE [Concomitant]
     Indication: COUGH
     Route: 048
     Dates: start: 20051024
  9. NEXIUM [Suspect]
     Route: 048
     Dates: start: 20091001
  10. NEXIUM [Suspect]
     Route: 048
     Dates: start: 20031031
  11. NEXIUM [Suspect]
     Route: 048
     Dates: start: 20040101, end: 20100101
  12. CALCIUM CARBONATE [Concomitant]
     Dates: start: 20000101, end: 20020101
  13. ADVIL [Concomitant]
     Dosage: PRN
  14. ROLAIDS [Concomitant]
     Dates: start: 20000101, end: 20020101
  15. VITAMIN D [Concomitant]
     Indication: OSTEOPOROSIS
  16. ZITHROMAX [Concomitant]
     Route: 065
     Dates: start: 20051024
  17. EVAMIST [Concomitant]
  18. ALEVE [Concomitant]
  19. LUNESTA [Concomitant]
     Route: 048
     Dates: start: 20050929

REACTIONS (8)
  - BACK INJURY [None]
  - SPINAL COMPRESSION FRACTURE [None]
  - POST LAMINECTOMY SYNDROME [None]
  - VITAMIN D DEFICIENCY [None]
  - BONE LOSS [None]
  - LUMBAR RADICULOPATHY [None]
  - OSTEOPOROSIS [None]
  - EMOTIONAL DISTRESS [None]
